FAERS Safety Report 6124237-9 (Version None)
Quarter: 2009Q1

REPORT INFORMATION
  Report Type: 
  Country: None (occurrence: None)
  Receive Date: 20090319
  Receipt Date: 20090309
  Transmission Date: 20090719
  Serious: Yes (Death, Other)
  Sender: FDA-Public Use
  Company Number: FR-BAXTER-2009BH003842

PATIENT
  Age: 78 Year
  Sex: Female

DRUGS (8)
  1. ENDOXAN BAXTER [Suspect]
     Indication: VASCULITIS
     Route: 042
     Dates: start: 20081120, end: 20090128
  2. ENDOXAN BAXTER [Suspect]
     Indication: OFF LABEL USE
     Route: 042
     Dates: start: 20081120, end: 20090128
  3. CORTANCYL [Concomitant]
     Indication: VASCULITIS
     Route: 048
     Dates: start: 20081123, end: 20090128
  4. OROCAL D(3) [Concomitant]
     Route: 048
     Dates: start: 20081120, end: 20090128
  5. MOPRAL [Concomitant]
     Route: 048
     Dates: start: 20081120, end: 20090128
  6. COVERSYL /FRA/ [Concomitant]
     Indication: HYPERTENSION
     Route: 048
     Dates: start: 20081229, end: 20090128
  7. STILNOX /FRA/ [Concomitant]
     Indication: INSOMNIA
     Route: 048
     Dates: start: 20081120, end: 20090128
  8. PENTAMIDINE [Concomitant]
     Indication: PNEUMOCYSTIS JIROVECI PNEUMONIA
     Route: 055
     Dates: start: 20081120, end: 20090128

REACTIONS (12)
  - ACUTE RESPIRATORY DISTRESS SYNDROME [None]
  - BLOOD PH DECREASED [None]
  - BLOOD PRESSURE INCREASED [None]
  - CARDIAC FAILURE [None]
  - CARDIAC HYPERTROPHY [None]
  - CARDIOTOXICITY [None]
  - CREPITATIONS [None]
  - CYANOSIS [None]
  - MYOCARDIAL ISCHAEMIA [None]
  - OXYGEN SATURATION DECREASED [None]
  - PO2 DECREASED [None]
  - TACHYCARDIA [None]
